FAERS Safety Report 21544585 (Version 1)
Quarter: 2022Q4

REPORT INFORMATION
  Report Type: Report from Study
  Country: US (occurrence: US)
  Receive Date: 20221102
  Receipt Date: 20221102
  Transmission Date: 20230113
  Serious: Yes (Other)
  Sender: FDA-Public Use
  Company Number: US-BIOGEN-2020BI00918971

PATIENT
  Sex: Male

DRUGS (2)
  1. SPINRAZA [Suspect]
     Active Substance: NUSINERSEN
     Indication: Spinal muscular atrophy
     Route: 050
  2. SPINRAZA [Suspect]
     Active Substance: NUSINERSEN
     Route: 050

REACTIONS (15)
  - Multiple fractures [Unknown]
  - Therapeutic product effect decreased [Recovered/Resolved]
  - Therapeutic response shortened [Recovered/Resolved]
  - Feeling abnormal [Recovered/Resolved]
  - Arthropathy [Not Recovered/Not Resolved]
  - Protein total increased [Recovered/Resolved]
  - Nephrolithiasis [Recovered/Resolved]
  - Arthralgia [Unknown]
  - Fatigue [Not Recovered/Not Resolved]
  - Blood cholesterol increased [Not Recovered/Not Resolved]
  - Blood creatine phosphokinase increased [Unknown]
  - Gait disturbance [Unknown]
  - General physical health deterioration [Unknown]
  - Muscle tightness [Unknown]
  - Back pain [Unknown]
